FAERS Safety Report 20977320 (Version 3)
Quarter: 2022Q4

REPORT INFORMATION
  Report Type: Spontaneous
  Country: US (occurrence: US)
  Receive Date: 20220617
  Receipt Date: 20221102
  Transmission Date: 20230113
  Serious: Yes (Hospitalization, Other)
  Sender: FDA-Public Use
  Company Number: US-009507513-2206USA003453

PATIENT
  Sex: Male

DRUGS (9)
  1. KEYTRUDA [Suspect]
     Active Substance: PEMBROLIZUMAB
     Indication: Lung cancer metastatic
     Dosage: 200 MILLIGRAM, Q3W
     Route: 042
     Dates: start: 202001
  2. TRUVADA [Suspect]
     Active Substance: EMTRICITABINE\TENOFOVIR DISOPROXIL FUMARATE
     Indication: HIV infection
     Dosage: UNK
     Dates: start: 2006, end: 2021
  3. TIVICAY [Concomitant]
     Active Substance: DOLUTEGRAVIR SODIUM
  4. DESCOVY [Concomitant]
     Active Substance: EMTRICITABINE\TENOFOVIR ALAFENAMIDE FUMARATE
  5. ALBUTEROL [Concomitant]
     Active Substance: ALBUTEROL
  6. HYDROMORPHONE [Concomitant]
     Active Substance: HYDROMORPHONE
     Dosage: UNK, PRN
  7. FLONASE [Concomitant]
     Active Substance: FLUTICASONE PROPIONATE
     Dosage: UNK, QD
  8. ONDANSETRON [Concomitant]
     Active Substance: ONDANSETRON
  9. XANAX [Concomitant]
     Active Substance: ALPRAZOLAM
     Dosage: UNK, PRN

REACTIONS (12)
  - Cellulitis [Recovering/Resolving]
  - Irritability [Recovering/Resolving]
  - Limb injury [Recovering/Resolving]
  - Tissue injury [Recovering/Resolving]
  - Blood creatinine abnormal [Unknown]
  - Blood creatinine increased [Recovering/Resolving]
  - Nausea [Recovering/Resolving]
  - Constipation [Recovering/Resolving]
  - Decreased appetite [Recovering/Resolving]
  - Fatigue [Recovering/Resolving]
  - Abdominal pain [Recovering/Resolving]
  - Dyspnoea [Recovering/Resolving]

NARRATIVE: CASE EVENT DATE: 20200101
